FAERS Safety Report 7985168-2 (Version None)
Quarter: 2011Q4

REPORT INFORMATION
  Report Type: 
  Country: None (occurrence: None)
  Receive Date: 20111123
  Receipt Date: 20110726
  Transmission Date: 20120403
  Serious: No
  Sender: FDA-Public Use
  Company Number: 334211

PATIENT
  Age: 50 Year
  Sex: Female

DRUGS (4)
  1. VICTOZA [Suspect]
     Indication: TYPE 2 DIABETES MELLITUS
     Dosage: SUBCUTANEOUS
     Route: 058
  2. ACTOSE (PIOGLITAZONE HYDROCHLORIDE) [Concomitant]
  3. GLUMETZA [Concomitant]
  4. METFORMIN HCL [Concomitant]

REACTIONS (1)
  - DIARRHOEA [None]
